FAERS Safety Report 8997439 (Version 1)
Quarter: 2013Q1

REPORT INFORMATION
  Report Type: Spontaneous
  Country: US (occurrence: US)
  Receive Date: 20130104
  Receipt Date: 20130104
  Transmission Date: 20140127
  Serious: No
  Sender: FDA-Public Use
  Company Number: US-ASTRAZENECA-2012SE93112

PATIENT
  Sex: Female

DRUGS (3)
  1. ZOMIG [Suspect]
     Dosage: 1-2 TABLETS PRN MAXIMUM 6 PER MONTH
     Route: 048
  2. IMITREX [Suspect]
     Route: 065
  3. PHENERGAN [Concomitant]

REACTIONS (4)
  - Cardiac disorder [Unknown]
  - Arrhythmia [Unknown]
  - Migraine [Unknown]
  - Drug dose omission [Unknown]
